FAERS Safety Report 6361585-1 (Version None)
Quarter: 2009Q3

REPORT INFORMATION
  Report Type: 
  Country: None (occurrence: None)
  Receive Date: 20090918
  Receipt Date: 20090909
  Transmission Date: 20100115
  Serious: Yes (Other)
  Sender: FDA-Public Use
  Company Number: PHHY2009CA38755

PATIENT
  Sex: Male

DRUGS (3)
  1. DESFERAL [Suspect]
     Indication: MYELODYSPLASTIC SYNDROME
     Dosage: UNK
     Route: 042
  2. OMEPRAZOLE [Concomitant]
     Dosage: 20 MG, QD
     Route: 048
  3. CYKLOKAPRON [Concomitant]
     Dosage: 2 DF, BID
     Route: 048

REACTIONS (3)
  - MALAISE [None]
  - PAIN [None]
  - WALKING AID USER [None]
